FAERS Safety Report 15122247 (Version 1)
Quarter: 2018Q3

REPORT INFORMATION
  Report Type: Spontaneous
  Country: CA (occurrence: CA)
  Receive Date: 20180709
  Receipt Date: 20180709
  Transmission Date: 20181010
  Serious: Yes (Disabling, Other)
  Sender: FDA-Public Use
  Company Number: CA-PURDUE PHARMA-CAN-2018-0008660

PATIENT
  Age: 61 Year
  Sex: Female
  Weight: 77.98 kg

DRUGS (4)
  1. OXYCODONE HYDROCHLORIDE. [Suspect]
     Active Substance: OXYCODONE HYDROCHLORIDE
     Indication: FIBULA FRACTURE
  2. OXYCODONE HYDROCHLORIDE. [Suspect]
     Active Substance: OXYCODONE HYDROCHLORIDE
     Indication: PAIN
  3. OXYCODONE HYDROCHLORIDE. [Suspect]
     Active Substance: OXYCODONE HYDROCHLORIDE
     Indication: LOWER LIMB FRACTURE
  4. OXYCODONE HYDROCHLORIDE. [Suspect]
     Active Substance: OXYCODONE HYDROCHLORIDE
     Indication: FALL
     Dosage: UNK UNK, Q4H
     Route: 065

REACTIONS (8)
  - Anger [Unknown]
  - Aggression [Unknown]
  - Intentional product use issue [Unknown]
  - Memory impairment [Not Recovered/Not Resolved]
  - Nightmare [Unknown]
  - Fatigue [Unknown]
  - Confusional state [Unknown]
  - Drug effect prolonged [Unknown]

NARRATIVE: CASE EVENT DATE: 20161111
